FAERS Safety Report 15951422 (Version 2)
Quarter: 2019Q1

REPORT INFORMATION
  Report Type: Spontaneous
  Country: US (occurrence: US)
  Receive Date: 20190211
  Receipt Date: 20190306
  Transmission Date: 20190417
  Serious: Yes (Other)
  Sender: FDA-Public Use
  Company Number: US-AKORN PHARMACEUTICALS-2019AKN00201

PATIENT
  Sex: Male

DRUGS (1)
  1. MYORISAN [Suspect]
     Active Substance: ISOTRETINOIN
     Dosage: 40 MG, 1X/DAY
     Dates: start: 20190116, end: 2019

REACTIONS (3)
  - Off label use [Recovered/Resolved]
  - Sleep disorder [Recovered/Resolved]
  - Depressive symptom [Recovered/Resolved]

NARRATIVE: CASE EVENT DATE: 2019
